FAERS Safety Report 5035637-2 (Version None)
Quarter: 2006Q2

REPORT INFORMATION
  Report Type: 
  Country: None (occurrence: None)
  Receive Date: 20060627
  Receipt Date: 20060620
  Transmission Date: 20061013
  Serious: Yes (Hospitalization)
  Sender: FDA-Public Use
  Company Number: JP-JPN-A200602152

PATIENT
  Age: 58 Year
  Sex: Male

DRUGS (1)
  1. ZEFIX [Suspect]
     Indication: HEPATIC CIRRHOSIS
     Dosage: 100MG PER DAY
     Route: 048
     Dates: start: 20060511

REACTIONS (1)
  - MALIGNANT NEOPLASM PROGRESSION [None]
